FAERS Safety Report 16640906 (Version 4)
Quarter: 2021Q1

REPORT INFORMATION
  Report Type: Report from Study
  Country: US (occurrence: US)
  Receive Date: 20190729
  Receipt Date: 20210325
  Transmission Date: 20210419
  Serious: Yes (Hospitalization, Other)
  Sender: FDA-Public Use
  Company Number: US-ROCHE-2356862

PATIENT
  Age: 74 Year
  Sex: Female
  Weight: 66.3 kg

DRUGS (3)
  1. LIPOSOMAL DOXORUBICIN [Suspect]
     Active Substance: DOXORUBICIN HYDROCHLORIDE
     Indication: OVARIAN CANCER
     Dosage: OVER 1 HOUR ON DAY 1
     Route: 042
     Dates: start: 20181214
  2. ATEZOLIZUMAB. [Suspect]
     Active Substance: ATEZOLIZUMAB
     Indication: OVARIAN CANCER
     Dosage: OVER 1 HOUR ON DAYS 1 AND 15
     Route: 042
     Dates: start: 20181214
  3. BEVACIZUMAB. [Suspect]
     Active Substance: BEVACIZUMAB
     Indication: OVARIAN CANCER
     Dosage: ON DAYS 1 AND 15
     Route: 042
     Dates: start: 20181214

REACTIONS (8)
  - Stomatitis [Recovered/Resolved]
  - Muscular weakness [Recovering/Resolving]
  - Fatigue [Unknown]
  - Pneumonitis [Unknown]
  - Oesophagitis [Recovered/Resolved]
  - Fatigue [Recovered/Resolved]
  - Small intestinal obstruction [Recovered/Resolved]
  - Muscular weakness [Recovered/Resolved]

NARRATIVE: CASE EVENT DATE: 20181218
